FAERS Safety Report 18467310 (Version 1)
Quarter: 2020Q4

REPORT INFORMATION
  Report Type: Other
  Country: CN (occurrence: CN)
  Receive Date: 20201105
  Receipt Date: 20201105
  Transmission Date: 20210114
  Serious: Yes (Other)
  Sender: FDA-Public Use
  Company Number: CN-ROCHE-2705552

PATIENT

DRUGS (7)
  1. METHOXYPHENAMINE [Suspect]
     Active Substance: METHOXYPHENAMINE
     Indication: COVID-19 PNEUMONIA
     Route: 065
  2. MOXIFLOXACIN. [Suspect]
     Active Substance: MOXIFLOXACIN
     Indication: COVID-19 PNEUMONIA
     Route: 065
  3. CEFDINIR. [Suspect]
     Active Substance: CEFDINIR
     Indication: COVID-19 PNEUMONIA
     Route: 065
  4. OSELTAMIVIR [Suspect]
     Active Substance: OSELTAMIVIR
     Indication: COVID-19 PNEUMONIA
     Route: 048
  5. ARBIDOL [Suspect]
     Active Substance: UMIFENOVIR
     Indication: COVID-19 PNEUMONIA
     Route: 048
  6. RIBAVIRIN. [Suspect]
     Active Substance: RIBAVIRIN
     Indication: COVID-19 PNEUMONIA
     Route: 065
  7. LEVOFLOXACIN. [Suspect]
     Active Substance: LEVOFLOXACIN
     Indication: COVID-19 PNEUMONIA
     Route: 065

REACTIONS (8)
  - Off label use [Unknown]
  - Insomnia [Unknown]
  - Nausea [Unknown]
  - Vomiting [Unknown]
  - Constipation [Unknown]
  - Intentional product use issue [Unknown]
  - Arrhythmia [Unknown]
  - Diarrhoea [Unknown]
